FAERS Safety Report 8984855 (Version 1)
Quarter: 2012Q4

REPORT INFORMATION
  Report Type: 
  Country: BR (occurrence: BR)
  Receive Date: 20121226
  Receipt Date: 20121226
  Transmission Date: 20130627
  Serious: Yes (Hospitalization, Other)
  Sender: FDA-Public Use
  Company Number: PHHY2012BR119159

PATIENT
  Age: 25 Year
  Sex: Male

DRUGS (1)
  1. LEPONEX [Suspect]
     Indication: SCHIZOPHRENIA
     Dosage: 100 mg, QID
     Route: 048

REACTIONS (5)
  - Aggression [Recovered/Resolved]
  - Sinusitis [Unknown]
  - Infection [Unknown]
  - Pneumonia [Recovered/Resolved]
  - Rhinitis [Unknown]
